FAERS Safety Report 17684535 (Version 1)
Quarter: 2020Q2

REPORT INFORMATION
  Report Type: Report from Study
  Country: US (occurrence: US)
  Receive Date: 20200420
  Receipt Date: 20200420
  Transmission Date: 20200714
  Serious: Yes (Death, Life-Threatening, Hospitalization, Other)
  Sender: FDA-Public Use
  Company Number: US-BRISTOL-MYERS SQUIBB COMPANY-BMS-2020-014626

PATIENT
  Age: 63 Year
  Sex: Male
  Weight: 76.9 kg

DRUGS (3)
  1. NIVOLUMAB [Suspect]
     Active Substance: NIVOLUMAB
     Indication: BLADDER CANCER
     Dosage: 422.9 MILLIGRAM
     Route: 042
     Dates: start: 20190923, end: 20200122
  2. IPILIMUMAB [Suspect]
     Active Substance: IPILIMUMAB
     Indication: BLADDER CANCER
     Dosage: 301.35 MILLIGRAM
     Route: 042
     Dates: start: 20190923, end: 20191202
  3. CABOZANTINIB [Suspect]
     Active Substance: CABOZANTINIB
     Indication: BLADDER CANCER
     Dosage: 1120 MILLIGRAM
     Route: 048
     Dates: start: 20190923, end: 20200203

REACTIONS (3)
  - Productive cough [Unknown]
  - Respiratory failure [Fatal]
  - Pneumonitis [Unknown]

NARRATIVE: CASE EVENT DATE: 20200209
